FAERS Safety Report 22395147 (Version 1)
Quarter: 2023Q2

REPORT INFORMATION
  Report Type: Spontaneous
  Country: CH (occurrence: CH)
  Receive Date: 20230601
  Receipt Date: 20230601
  Transmission Date: 20230721
  Serious: Yes (Other)
  Sender: FDA-Public Use
  Company Number: CH-BRISTOL-MYERS SQUIBB COMPANY-2023-076012

PATIENT

DRUGS (2)
  1. NULOJIX [Suspect]
     Active Substance: BELATACEPT
     Indication: Heart transplant
     Dosage: 5 MG/KG IN WEEK 0, 2, 4, 6 AND 8, THE THERAPEUTIC RANGE IS LARGE, SO WE OFTEN ROUND UP TO FULL AMPUL
  2. NULOJIX [Suspect]
     Active Substance: BELATACEPT
     Dosage: EVERY 4-5 WEEKS, THE THERAPEUTIC RANGE IS LARGE, SO WE OFTEN ROUND UP TO FULL AMPULES (250 MG EACH)

REACTIONS (2)
  - Renal disorder [Unknown]
  - Off label use [Unknown]
